FAERS Safety Report 11848547 (Version 1)
Quarter: 2015Q4

REPORT INFORMATION
  Report Type: Other
  Country: GB (occurrence: GB)
  Receive Date: 20151218
  Receipt Date: 20151218
  Transmission Date: 20160305
  Serious: Yes (Life-Threatening)
  Sender: FDA-Public Use
  Company Number: GB-CIPLA LTD.-2015GB09413

PATIENT

DRUGS (4)
  1. DEXAMETASONE [Concomitant]
     Active Substance: DEXAMETHASONE
     Route: 065
  2. MEBEVERUINE [Concomitant]
     Route: 065
  3. CYCLIZINE [Concomitant]
     Active Substance: CYCLIZINE
     Route: 065
  4. GEMCITABINE [Suspect]
     Active Substance: GEMCITABINE\GEMCITABINE HYDROCHLORIDE
     Indication: PANCREATIC CARCINOMA
     Dosage: UNK
     Route: 042
     Dates: start: 20150701, end: 20151119

REACTIONS (5)
  - Visual impairment [Not Recovered/Not Resolved]
  - Transient ischaemic attack [Unknown]
  - Coordination abnormal [Not Recovered/Not Resolved]
  - Pulmonary embolism [Unknown]
  - Thrombosis [Recovering/Resolving]

NARRATIVE: CASE EVENT DATE: 20151122
